FAERS Safety Report 18567009 (Version 4)
Quarter: 2021Q1

REPORT INFORMATION
  Report Type: Spontaneous
  Country: US (occurrence: US)
  Receive Date: 20201201
  Receipt Date: 20210225
  Transmission Date: 20210419
  Serious: Yes (Other)
  Sender: FDA-Public Use
  Company Number: US-INCYTE CORPORATION-2020IN011591

PATIENT

DRUGS (4)
  1. JAKAFI [Suspect]
     Active Substance: RUXOLITINIB
     Dosage: ONE 5 MG PILL A DAY
     Route: 065
  2. BETIMOL [TIMOLOL] [Concomitant]
     Indication: PRODUCT USED FOR UNKNOWN INDICATION
     Route: 065
  3. JAKAFI [Suspect]
     Active Substance: RUXOLITINIB
     Indication: MYELOFIBROSIS
     Dosage: 5 MG BID (MWF) AND QD (TUES,THURS,SAT, SUN)
     Route: 065
  4. JAKAFI [Suspect]
     Active Substance: RUXOLITINIB
     Dosage: 5 MG BID (MWF) AND 5 MG QD ON (TTHSATSUN)
     Route: 048
     Dates: start: 20201008

REACTIONS (12)
  - Fatigue [Unknown]
  - Plasma cells decreased [Unknown]
  - Weight gain poor [Unknown]
  - Peripheral swelling [Unknown]
  - Product dose omission issue [Unknown]
  - Poor quality sleep [Unknown]
  - Anaemia [Unknown]
  - Contusion [Unknown]
  - Asthenia [Unknown]
  - Dizziness [Unknown]
  - Night sweats [Unknown]
  - Palpitations [Unknown]
